FAERS Safety Report 4601625-0 (Version None)
Quarter: 2005Q1

REPORT INFORMATION
  Report Type: 
  Country: None (occurrence: None)
  Receive Date: 20050131
  Receipt Date: 20041215
  Transmission Date: 20050727
  Serious: No
  Sender: FDA-Public Use
  Company Number: 200418371US

PATIENT
  Age: 49 Year
  Sex: Female
  Weight: 54.5 kg

DRUGS (5)
  1. KETEK [Suspect]
     Indication: SINUSITIS
     Dosage: 400 MG BID
     Dates: start: 20040923, end: 20040924
  2. PSEUDOEPHEDRINE HYDROCHLORIDE (SUDAFED) [Concomitant]
  3. ACETYLSALICYLIC ACID SRT [Concomitant]
  4. CAFFEINE [Concomitant]
  5. PARACETAMOL (EXCEDRIN EXTRA STRENGTH) [Concomitant]

REACTIONS (3)
  - CRYING [None]
  - VISION BLURRED [None]
  - VISUAL ACUITY REDUCED [None]
